FAERS Safety Report 8976032 (Version 1)
Quarter: 2012Q4

REPORT INFORMATION
  Report Type: 
  Country: GB (occurrence: GB)
  Receive Date: 20121219
  Receipt Date: 20121219
  Transmission Date: 20130627
  Serious: Yes (Hospitalization, Other)
  Sender: FDA-Public Use
  Company Number: PHHY2012GB115269

PATIENT
  Age: 90 Year
  Sex: Female

DRUGS (7)
  1. RAMIPRIL [Suspect]
     Dosage: 5 mg, QD
  2. TRIMETHOPRIM [Interacting]
     Indication: URINARY TRACT INFECTION
     Dosage: 200 mg, BID
     Route: 048
     Dates: start: 20110916, end: 20110920
  3. FERROUS SULPHATE [Concomitant]
  4. ZOPICLONE [Concomitant]
  5. CLOPIDOGREL [Concomitant]
  6. ISOSORBIDE MONONITRATE [Concomitant]
  7. BISOPROLOL [Concomitant]

REACTIONS (8)
  - Cardiac disorder [Unknown]
  - Fall [Unknown]
  - Renal failure acute [Recovered/Resolved]
  - Hyperkalaemia [Recovered/Resolved]
  - Hypertension [Unknown]
  - Renal impairment [Unknown]
  - Potentiating drug interaction [Unknown]
  - Cough [Unknown]
